FAERS Safety Report 11374785 (Version 1)
Quarter: 2015Q3

REPORT INFORMATION
  Report Type: Spontaneous
  Country: US (occurrence: None)
  Receive Date: 20150812
  Receipt Date: 20150812
  Transmission Date: 20151125
  Serious: No
  Sender: FDA-Public Use
  Company Number: None

PATIENT
  Age: 72 Year
  Sex: Female

DRUGS (10)
  1. EXJADE [Suspect]
     Active Substance: DEFERASIROX
     Indication: CHELATION THERAPY
     Route: 048
     Dates: start: 20120531, end: 201507
  2. SIMVASTATIN. [Concomitant]
     Active Substance: SIMVASTATIN
  3. DILT-XR [Concomitant]
     Active Substance: DILTIAZEM
  4. DILTAZEM [Concomitant]
  5. AMOX/K CLAV [Concomitant]
     Active Substance: AMOXICILLIN\CLAVULANATE POTASSIUM
  6. DEXAMETHASON ELX [Concomitant]
  7. LISINOPRIL. [Concomitant]
     Active Substance: LISINOPRIL
  8. CLOBETASOL [Concomitant]
     Active Substance: CLOBETASOL
  9. CHLORTHALID [Concomitant]
  10. CARTIA XT [Concomitant]
     Active Substance: DILTIAZEM HYDROCHLORIDE

REACTIONS (2)
  - Blood creatinine increased [None]
  - Contusion [None]

NARRATIVE: CASE EVENT DATE: 201507
